FAERS Safety Report 24532192 (Version 2)
Quarter: 2024Q4

REPORT INFORMATION
  Report Type: Spontaneous
  Country: US (occurrence: US)
  Receive Date: 20241022
  Receipt Date: 20241112
  Transmission Date: 20250114
  Serious: Yes (Hospitalization, Other)
  Sender: JAZZ
  Company Number: US-JAZZ PHARMACEUTICALS-2024-US-018603

PATIENT
  Age: 54 Year
  Sex: Male

DRUGS (1)
  1. XYREM [Suspect]
     Active Substance: SODIUM OXYBATE
     Indication: Product used for unknown indication
     Dosage: UNK

REACTIONS (11)
  - Depressed level of consciousness [Recovering/Resolving]
  - Respiratory depression [Recovering/Resolving]
  - Alkalosis [Recovering/Resolving]
  - Agitation [Recovering/Resolving]
  - Anion gap increased [Recovering/Resolving]
  - Vomiting [Recovering/Resolving]
  - Electrocardiogram PR prolongation [Recovering/Resolving]
  - Electrocardiogram QRS complex prolonged [Recovering/Resolving]
  - Electrocardiogram QT prolonged [Recovering/Resolving]
  - Inappropriate schedule of product administration [Recovering/Resolving]
  - Product administration error [Unknown]
